FAERS Safety Report 9753034 (Version 1)
Quarter: 2013Q4

REPORT INFORMATION
  Report Type: Spontaneous
  Country: US (occurrence: None)
  Receive Date: 20131211
  Receipt Date: 20131211
  Transmission Date: 20140711
  Serious: Yes (Other)
  Sender: FDA-Public Use
  Company Number: 2013SA127005

PATIENT
  Sex: 0

DRUGS (1)
  1. ICY HOT [Suspect]

REACTIONS (2)
  - Loss of consciousness [None]
  - Incorrect route of drug administration [None]
